FAERS Safety Report 20123108 (Version 1)
Quarter: 2021Q4

REPORT INFORMATION
  Report Type: Spontaneous
  Country: US (occurrence: US)
  Receive Date: 20211129
  Receipt Date: 20211129
  Transmission Date: 20220303
  Serious: No
  Sender: FDA-Public Use
  Company Number: US-UCBSA-2020042081

PATIENT

DRUGS (3)
  1. VIMPAT [Suspect]
     Active Substance: LACOSAMIDE
     Indication: Seizure
     Dosage: UNK
  2. VIMPAT [Suspect]
     Active Substance: LACOSAMIDE
     Indication: Migraine
  3. TEGRETOL [Concomitant]
     Active Substance: CARBAMAZEPINE
     Indication: Seizure

REACTIONS (2)
  - Feeling abnormal [Unknown]
  - Product use issue [Unknown]
